FAERS Safety Report 8058158-1 (Version None)
Quarter: 2012Q1

REPORT INFORMATION
  Report Type: 
  Country: None (occurrence: None)
  Receive Date: 20120120
  Receipt Date: 20120105
  Transmission Date: 20120608
  Serious: Yes (Other)
  Sender: FDA-Public Use
  Company Number: CA-JNJFOC-20120105601

PATIENT
  Sex: Female

DRUGS (3)
  1. INFLUENZA SHOT [Suspect]
     Indication: PROPHYLAXIS
  2. REMICADE [Suspect]
     Indication: CROHN'S DISEASE
     Route: 042
  3. SYNTHROID [Concomitant]
     Route: 065

REACTIONS (3)
  - RASH [None]
  - MALAISE [None]
  - ADVERSE DRUG REACTION [None]
